FAERS Safety Report 17817080 (Version 14)
Quarter: 2021Q3

REPORT INFORMATION
  Report Type: Spontaneous
  Country: IT (occurrence: IT)
  Receive Date: 20200522
  Receipt Date: 20210820
  Transmission Date: 20211014
  Serious: Yes (Death, Hospitalization, Other)
  Sender: FDA-Public Use
  Company Number: IT-MYLANLABS-2020M1050465

PATIENT
  Age: 21 Year
  Sex: Male

DRUGS (21)
  1. CASPOFUNGIN [Suspect]
     Active Substance: CASPOFUNGIN
     Indication: ASPERGILLUS INFECTION
     Dosage: 70 MILLIGRAM, QD
  2. CANCIDAS [Suspect]
     Active Substance: CASPOFUNGIN ACETATE
     Indication: ASPERGILLUS INFECTION
     Dosage: 70 MG, 1X/DAY (CUMULATIVE DOSE OF 5 G)
  3. CASPOFUNGIN [Suspect]
     Active Substance: CASPOFUNGIN
     Indication: BRONCHOPULMONARY ASPERGILLOSIS
     Dosage: 70 MILLIGRAM, QD (1X/DAY (CUMULATIVE DOSE OF 5 G) )
  4. VORICONAZOLE. [Suspect]
     Active Substance: VORICONAZOLE
     Indication: ASPERGILLUS INFECTION
     Dosage: 12 MG/KG, QD (1X/DAY )
     Route: 042
  5. VORICONAZOLE. [Concomitant]
     Active Substance: VORICONAZOLE
     Dosage: 1 DOSAGE FORM, QD
     Route: 042
  6. VORICONAZOLE. [Concomitant]
     Active Substance: VORICONAZOLE
     Dosage: UNK UNK, QD
  7. AMPHOTERICIN B. [Concomitant]
     Active Substance: AMPHOTERICIN B
     Dosage: 1 DOSAGE FORM, QD (5 MG/KG/DAY, CUMULATIVE DOSE 4.75 G)
  8. AMPHOTERICIN B, LIPOSOME [Suspect]
     Active Substance: AMPHOTERICIN B
     Indication: BRONCHOPULMONARY ASPERGILLOSIS
     Dosage: 3 MG/KG, 1X/DAY (CUMULATIVE DOSE OF 5 G)
  9. AMPHOTERICIN B. [Concomitant]
     Active Substance: AMPHOTERICIN B
     Dosage: 1 DOSAGE FORM, QD (3 MG/KG/DAY TO A CUMULATIVE DOSE OF 5G)
  10. CASPOFUNGIN [Suspect]
     Active Substance: CASPOFUNGIN
     Indication: ANTIFUNGAL TREATMENT
     Dosage: 70 MILLIGRAM, QD
  11. AMPHOTERICIN B, LIPOSOME [Suspect]
     Active Substance: AMPHOTERICIN B
     Indication: ANTIFUNGAL TREATMENT
     Dosage: 5 MG/KG, 1X/DAY (SECOND CYCLE OF LIPOSOMAL) (CUMULATIVE DOSE OF 4.75 G)
  12. CANCIDAS [Suspect]
     Active Substance: CASPOFUNGIN ACETATE
     Indication: BRONCHOPULMONARY ASPERGILLOSIS
     Dosage: 70 MILLIGRAM, QD
  13. VORICONAZOLE. [Concomitant]
     Active Substance: VORICONAZOLE
     Indication: BRONCHOPULMONARY ASPERGILLOSIS
     Dosage: 8 MILLIGRAM/KILOGRAM, QD
     Route: 042
  14. AMPHOTERICIN B. [Concomitant]
     Active Substance: AMPHOTERICIN B
     Dosage: 1 DOSAGE FORM, QD (5 MG/KG/DAY, CUMULATIVE DOSE 4.75 G)
     Route: 061
  15. AMPHOTERICIN B, LIPOSOME [Suspect]
     Active Substance: AMPHOTERICIN B
     Indication: ASPERGILLUS INFECTION
  16. VORICONAZOLE. [Concomitant]
     Active Substance: VORICONAZOLE
     Indication: ASPERGILLUS INFECTION
     Dosage: 12 MILLIGRAM/KILOGRAM, QD
     Route: 042
  17. VORICONAZOLE. [Concomitant]
     Active Substance: VORICONAZOLE
     Dosage: UNK, QD
     Route: 042
  18. AMPHOTERICIN B. [Concomitant]
     Active Substance: AMPHOTERICIN B
     Indication: ANTIFUNGAL TREATMENT
     Dosage: DAILY,TOPICAL WASHING WITH CONVENTIONAL DILUTED AMPHOTERICIN B
     Route: 061
  19. VORICONAZOLE. [Suspect]
     Active Substance: VORICONAZOLE
     Indication: BRONCHOPULMONARY ASPERGILLOSIS
     Dosage: UNK UNK, QD
     Route: 042
  20. VORICONAZOLE. [Suspect]
     Active Substance: VORICONAZOLE
     Dosage: 8 MG/KG, QD (1X/DAY )
     Route: 042
  21. AMPHOTERICIN B. [Concomitant]
     Active Substance: AMPHOTERICIN B
     Indication: ASPERGILLUS INFECTION
     Dosage: 1 DOSAGE FORM, QD (3 MG/KG/DAY TO A CUMULATIVE DOSE OF 5G)
     Route: 061

REACTIONS (7)
  - Paraplegia [Fatal]
  - Proteinuria [Fatal]
  - Drug ineffective [Fatal]
  - Hypokalaemia [Fatal]
  - Aspergillus infection [Fatal]
  - Product use in unapproved indication [Unknown]
  - Acute respiratory failure [Fatal]
